FAERS Safety Report 21466154 (Version 15)
Quarter: 2023Q4

REPORT INFORMATION
  Report Type: Report from Study
  Country: BR (occurrence: None)
  Receive Date: 20221017
  Receipt Date: 20231208
  Transmission Date: 20240110
  Serious: Yes (Hospitalization)
  Sender: FDA-Public Use
  Company Number: BR-ROCHE-3199265

PATIENT
  Age: 58 Year
  Sex: Female
  Weight: 87 kg

DRUGS (21)
  1. ADO-TRASTUZUMAB EMTANSINE [Suspect]
     Active Substance: ADO-TRASTUZUMAB EMTANSINE
     Indication: HER2 positive breast cancer
     Dosage: ON 21/SEP/2022, MOST RECENT DOSE OF 309.6 MG OF TRASTUZUMAB EMTANSINE PRIOR TO AE AND SAE WAS ADMINI
     Route: 042
     Dates: start: 20220609
  2. ATEZOLIZUMAB [Suspect]
     Active Substance: ATEZOLIZUMAB
     Indication: HER2 positive breast cancer
     Dosage: ON 21/SEP/2022, MOST RECENT DOSE OF ATEZOLIZUMAB PRIOR TO AE WAS ADMINISTERED.
     Route: 042
     Dates: start: 20220609
  3. ATENOLOL [Concomitant]
     Active Substance: ATENOLOL
     Indication: Hypertension
     Dates: start: 2005
  4. HYDROCHLOROTHIAZIDE [Concomitant]
     Active Substance: HYDROCHLOROTHIAZIDE
     Indication: Hypertension
     Dates: start: 2005, end: 20221122
  5. LOSARTAN [Concomitant]
     Active Substance: LOSARTAN
     Indication: Hypertension
     Dates: start: 2005
  6. SIMVASTATIN [Concomitant]
     Active Substance: SIMVASTATIN
     Indication: Dyslipidaemia
     Dates: start: 2020
  7. DIPYRONE [Concomitant]
     Active Substance: DIPYRONE
     Indication: Pain
     Dates: start: 20220919
  8. DIPYRONE [Concomitant]
     Active Substance: DIPYRONE
     Dates: start: 20221003, end: 20221003
  9. DIPYRONE [Concomitant]
     Active Substance: DIPYRONE
     Dates: start: 20221010, end: 20221010
  10. PIROXICAM [Concomitant]
     Active Substance: PIROXICAM
     Dates: start: 20220919
  11. METOCLOPRAMIDE [Concomitant]
     Active Substance: METOCLOPRAMIDE
     Indication: Nausea
     Dates: start: 20221003
  12. DIMENHYDRINATE\PYRIDOXINE HYDROCHLORIDE [Concomitant]
     Active Substance: DIMENHYDRINATE\PYRIDOXINE HYDROCHLORIDE
     Indication: Nausea
     Dates: start: 20221003
  13. ENALAPRIL [Concomitant]
     Active Substance: ENALAPRIL
     Indication: Hypertension
     Dates: start: 20221117, end: 20221117
  14. AMLODIPINE [Concomitant]
     Active Substance: AMLODIPINE BESYLATE
     Indication: Hypertension
     Dates: start: 20221122, end: 20230509
  15. AMLODIPINE [Concomitant]
     Active Substance: AMLODIPINE BESYLATE
     Dates: start: 20230510
  16. HYDROCORTISONE [Concomitant]
     Active Substance: HYDROCORTISONE
     Dosage: 20MG IN THE MORNING AND 10MG IN THE AFTERNOON
  17. METOCLOPRAMIDE HYDROCHLORIDE [Concomitant]
     Active Substance: METOCLOPRAMIDE HYDROCHLORIDE
     Indication: Vomiting
     Dates: start: 20221003, end: 20221003
  18. METOCLOPRAMIDE HYDROCHLORIDE [Concomitant]
     Active Substance: METOCLOPRAMIDE HYDROCHLORIDE
     Dates: start: 20221010, end: 20221010
  19. METOCLOPRAMIDE HYDROCHLORIDE [Concomitant]
     Active Substance: METOCLOPRAMIDE HYDROCHLORIDE
     Dates: start: 20221010, end: 20221013
  20. OMEPRAZOLE [Concomitant]
     Active Substance: OMEPRAZOLE
     Dates: start: 20221010, end: 20221010
  21. ONDANSETRON [Concomitant]
     Active Substance: ONDANSETRON
     Indication: Vomiting
     Dates: start: 20221011, end: 20221013

REACTIONS (1)
  - Adrenal insufficiency [Not Recovered/Not Resolved]

NARRATIVE: CASE EVENT DATE: 20221003
